FAERS Safety Report 8367442-3 (Version None)
Quarter: 2012Q2

REPORT INFORMATION
  Report Type: 
  Country: None (occurrence: None)
  Receive Date: 20120517
  Receipt Date: 20120131
  Transmission Date: 20120825
  Serious: No
  Sender: FDA-Public Use
  Company Number: US-GLAXOSMITHKLINE-A0964032A

PATIENT
  Age: 69 Year
  Sex: Male

DRUGS (4)
  1. PEPCID [Concomitant]
  2. VOTRIENT [Suspect]
     Indication: RENAL CELL CARCINOMA
     Dosage: 200MG PER DAY
     Route: 048
     Dates: start: 20120127
  3. LIPITOR [Concomitant]
  4. SINGULAIR [Concomitant]

REACTIONS (1)
  - HEADACHE [None]
